FAERS Safety Report 4375891-3 (Version None)
Quarter: 2004Q2

REPORT INFORMATION
  Report Type: 
  Country: None (occurrence: None)
  Receive Date: 20040609
  Receipt Date: 20040609
  Transmission Date: 20050107
  Serious: Yes (Hospitalization)
  Sender: FDA-Public Use
  Company Number: None

PATIENT
  Sex: Male

DRUGS (5)
  1. LABETALOL HCL [Suspect]
     Indication: HYPERTENSION
     Dosage: PO
     Route: 048
  2. LISINOPRIL [Suspect]
     Indication: HYPERTENSION
     Dosage: PO
     Route: 048
  3. NIFEDIPINE [Suspect]
     Indication: HYPERTENSION
     Dosage: PO
     Route: 048
  4. METOPROLOL TARTRATE [Suspect]
     Indication: HYPERTENSION
     Dosage: PO
     Route: 048
  5. DIOVAN [Suspect]
     Indication: HYPERTENSION
     Dosage: PO
     Route: 048

REACTIONS (3)
  - ERECTILE DYSFUNCTION [None]
  - HYPERTENSIVE EMERGENCY [None]
  - TREATMENT NONCOMPLIANCE [None]
